FAERS Safety Report 8484122-4 (Version None)
Quarter: 2012Q3

REPORT INFORMATION
  Report Type: 
  Country: None (occurrence: None)
  Receive Date: 20120703
  Receipt Date: 20120626
  Transmission Date: 20120928
  Serious: Yes (Life-Threatening, Hospitalization)
  Sender: FDA-Public Use
  Company Number: IE-SANOFI-AVENTIS-2012SA005284

PATIENT
  Sex: Male
  Weight: 87.6 kg

DRUGS (9)
  1. ASPIRIN [Concomitant]
  2. TINZAPARIN SODIUM [Concomitant]
     Dosage: DOSE:4500 UNIT(S)
     Route: 065
  3. ZOCOR [Concomitant]
     Route: 065
  4. FOLIC ACID [Concomitant]
     Route: 065
  5. IMDUR [Concomitant]
     Route: 065
  6. PREDNISOLONE [Suspect]
     Route: 048
     Dates: start: 20120116
  7. CABAZITAXEL [Suspect]
     Route: 042
     Dates: start: 20120116, end: 20120116
  8. MORPHINE [Concomitant]
  9. ALL OTHER THERAPEUTIC PRODUCTS [Concomitant]
     Route: 065

REACTIONS (3)
  - DIZZINESS [None]
  - RESPIRATORY FAILURE [None]
  - CARDIAC FAILURE CONGESTIVE [None]
